FAERS Safety Report 8383200-8 (Version None)
Quarter: 2012Q2

REPORT INFORMATION
  Report Type: 
  Country: None (occurrence: None)
  Receive Date: 20120524
  Receipt Date: 20120522
  Transmission Date: 20120825
  Serious: Yes (Hospitalization, Other)
  Sender: FDA-Public Use
  Company Number: IT-BRISTOL-MYERS SQUIBB COMPANY-16568834

PATIENT
  Age: 77 Year
  Sex: Male

DRUGS (6)
  1. LEVOTHYROXINE SODIUM [Concomitant]
  2. COUMADIN [Suspect]
     Indication: DEEP VEIN THROMBOSIS
     Dosage: INTERRUPTED ON 16APR2012
     Dates: start: 20100502
  3. RABEPRAZOLE SODIUM [Concomitant]
  4. OLMESARTAN MEDOXOMIL [Concomitant]
  5. METFORMIN HCL [Concomitant]
  6. SIMVASTATIN [Concomitant]

REACTIONS (3)
  - FALL [None]
  - HAEMATOMA [None]
  - HAEMOGLOBIN DECREASED [None]
